FAERS Safety Report 6648920-1 (Version None)
Quarter: 2010Q1

REPORT INFORMATION
  Report Type: 
  Country: None (occurrence: None)
  Receive Date: 20100324
  Receipt Date: 20100317
  Transmission Date: 20100710
  Serious: Yes (Hospitalization, Other)
  Sender: FDA-Public Use
  Company Number: US-SANOFI-AVENTIS-2010SA016061

PATIENT
  Age: 78 Year
  Sex: Male

DRUGS (3)
  1. LANTUS [Suspect]
     Indication: INSULIN-REQUIRING TYPE 2 DIABETES MELLITUS
     Dosage: DOSE:30 UNIT(S)
     Route: 058
  2. LANTUS [Suspect]
     Route: 058
     Dates: start: 20050101
  3. OPTICLICK [Suspect]
     Indication: INSULIN-REQUIRING TYPE 2 DIABETES MELLITUS
     Dates: start: 20050101

REACTIONS (3)
  - ANXIETY [None]
  - CARDIAC FAILURE CONGESTIVE [None]
  - LUNG NEOPLASM MALIGNANT [None]
